FAERS Safety Report 18952834 (Version 1)
Quarter: 2021Q1

REPORT INFORMATION
  Report Type: Spontaneous
  Country: US (occurrence: US)
  Receive Date: 20210226
  Receipt Date: 20210226
  Transmission Date: 20210420
  Serious: Yes (Hospitalization)
  Sender: FDA-Public Use
  Company Number: None

PATIENT
  Age: 75 Year
  Sex: Male
  Weight: 95 kg

DRUGS (2)
  1. LISINOPRIL. [Suspect]
     Active Substance: LISINOPRIL
     Indication: ARTERIOSCLEROSIS CORONARY ARTERY
     Route: 048
     Dates: end: 20210225
  2. LISINOPRIL. [Suspect]
     Active Substance: LISINOPRIL
     Indication: HYPERTENSION
     Route: 048
     Dates: end: 20210225

REACTIONS (5)
  - Speech disorder [None]
  - Angioedema [None]
  - Swollen tongue [None]
  - Swelling face [None]
  - Dysphagia [None]

NARRATIVE: CASE EVENT DATE: 20210225
